FAERS Safety Report 6846316-0 (Version None)
Quarter: 2010Q3

REPORT INFORMATION
  Report Type: 
  Country: None (occurrence: None)
  Receive Date: 20100715
  Receipt Date: 20071123
  Transmission Date: 20110219
  Serious: Yes (Other)
  Sender: FDA-Public Use
  Company Number: US-PFIZER INC-2007076692

PATIENT
  Sex: Female
  Weight: 58.1 kg

DRUGS (4)
  1. CHANTIX [Suspect]
     Indication: SMOKING CESSATION THERAPY
     Route: 048
     Dates: start: 20070601, end: 20070901
  2. CHANTIX [Suspect]
     Indication: TOBACCO ABUSE
  3. SYNTHROID [Concomitant]
  4. FLUDROCORTISONE [Concomitant]

REACTIONS (3)
  - AMENORRHOEA [None]
  - HOT FLUSH [None]
  - MENSTRUATION IRREGULAR [None]
